FAERS Safety Report 10139549 (Version 1)
Quarter: 2014Q2

REPORT INFORMATION
  Report Type: Spontaneous
  Country: IT (occurrence: IT)
  Receive Date: 20140429
  Receipt Date: 20140429
  Transmission Date: 20141212
  Serious: Yes (Other)
  Sender: FDA-Public Use
  Company Number: IT-SHIRE-IT201401394

PATIENT
  Age: 67 Year
  Sex: Female

DRUGS (4)
  1. 422 (ANAGRELIDE) [Suspect]
     Indication: ESSENTIAL THROMBOCYTHAEMIA
     Dosage: 1 MG, (TWO 0.5 MG)  1X/DAY:QD
     Route: 048
     Dates: start: 201301, end: 2013
  2. 422 (ANAGRELIDE) [Suspect]
     Dosage: 1.5 MG, 1X/DAY:QD
     Route: 048
     Dates: start: 201306, end: 2013
  3. 422 (ANAGRELIDE) [Suspect]
     Dosage: 1 MG, 1X/DAY:QD
     Route: 048
     Dates: start: 201310
  4. PICOTAMIDE [Concomitant]
     Indication: ESSENTIAL THROMBOCYTHAEMIA
     Dosage: 300 MG, 1X/DAY:QD
     Route: 065

REACTIONS (4)
  - Sinus tachycardia [Recovering/Resolving]
  - Headache [Recovered/Resolved]
  - Palpitations [Recovering/Resolving]
  - Paraesthesia [Unknown]
